FAERS Safety Report 7365414-9 (Version None)
Quarter: 2011Q1

REPORT INFORMATION
  Report Type: 
  Country: None (occurrence: None)
  Receive Date: 20110315
  Receipt Date: 20110315
  Transmission Date: 20110831
  Serious: No
  Sender: FDA-Public Use
  Company Number: None

PATIENT
  Sex: Female
  Weight: 58.9676 kg

DRUGS (1)
  1. LUNESTA [Suspect]
     Indication: INSOMNIA
     Dosage: 1 MG 1-EVE.
     Dates: start: 20110108, end: 20110124

REACTIONS (7)
  - TEARFULNESS [None]
  - HEADACHE [None]
  - DISORIENTATION [None]
  - DIZZINESS [None]
  - HALLUCINATION [None]
  - MIDDLE INSOMNIA [None]
  - DEPRESSION [None]
